FAERS Safety Report 9528267 (Version 1)
Quarter: 2013Q3

REPORT INFORMATION
  Report Type: Spontaneous
  Country: US (occurrence: US)
  Receive Date: 20130917
  Receipt Date: 20130917
  Transmission Date: 20140515
  Serious: Yes (Death, Life-Threatening, Hospitalization)
  Sender: FDA-Public Use
  Company Number: PHHY2013US102224

PATIENT
  Age: 55 Year
  Sex: Female
  Weight: 112.25 kg

DRUGS (13)
  1. ZOLEDRONIC ACID [Suspect]
     Indication: METASTASES TO BONE
     Dosage: 04 MG, EVERY 3-4 WEEKS
     Route: 041
  2. ZOLEDRONIC ACID [Suspect]
     Dosage: 04 MG, EVERY 3-4 WEEKS
     Route: 041
     Dates: start: 20120703
  3. COREG [Concomitant]
     Dosage: UNK UKN, UNK
  4. BAYERS ASPIRIN [Concomitant]
     Dosage: UNK UKN, UNK
  5. NEURONTIN [Concomitant]
     Dosage: UNK UKN, UNK
  6. ADVAIR DISKUS [Concomitant]
     Dosage: UNK UKN, UNK
  7. CRESTOR [Concomitant]
     Dosage: UNK UKN, UNK
  8. ATIVAN [Concomitant]
     Dosage: UNK UKN, UNK
  9. DILAUDID [Concomitant]
     Dosage: UNK UKN, UNK
  10. PROCHLORPERAZINE MALEATE [Concomitant]
     Dosage: UNK UKN, UNK
  11. FEMARA [Concomitant]
     Dosage: UNK UKN, UNK
  12. LORTAB [Concomitant]
     Dosage: UNK UKN, UNK
  13. MS CONTIN [Concomitant]
     Dosage: UNK UKN, UNK

REACTIONS (8)
  - Death [Fatal]
  - Renal injury [Unknown]
  - Septic shock [Unknown]
  - Nausea [Unknown]
  - Vomiting [Unknown]
  - Pyrexia [Unknown]
  - Diarrhoea [Unknown]
  - Hypokalaemia [Unknown]
